FAERS Safety Report 16406060 (Version 1)
Quarter: 2019Q2

REPORT INFORMATION
  Report Type: Spontaneous
  Country: US (occurrence: US)
  Receive Date: 20190607
  Receipt Date: 20190607
  Transmission Date: 20190711
  Serious: No
  Sender: FDA-Public Use
  Company Number: US-ALLERGAN-1857152US

PATIENT
  Age: 77 Year
  Sex: Male

DRUGS (2)
  1. VIBERZI [Suspect]
     Active Substance: ELUXADOLINE
     Indication: DIARRHOEA
     Dosage: ACTUAL: IMMEDIATELY BEFORE A MEAL
     Route: 048
     Dates: start: 2018
  2. LOPERAMIDE [Concomitant]
     Active Substance: LOPERAMIDE
     Dosage: ACTUAL: AFTER THE MEAL

REACTIONS (4)
  - Inappropriate schedule of product administration [Unknown]
  - Off label use [Unknown]
  - Contraindicated product administered [Unknown]
  - Therapeutic response unexpected [Recovered/Resolved]
